FAERS Safety Report 19521010 (Version 2)
Quarter: 2021Q3

REPORT INFORMATION
  Report Type: Spontaneous
  Country: DE (occurrence: DE)
  Receive Date: 20210712
  Receipt Date: 20210726
  Transmission Date: 20211014
  Serious: Yes (Other)
  Sender: FDA-Public Use
  Company Number: DE-MYLANLABS-2021M1040987

PATIENT
  Age: 49 Year
  Sex: Female

DRUGS (3)
  1. ARIPIPRAZOLE. [Suspect]
     Active Substance: ARIPIPRAZOLE
     Indication: DEPRESSION
     Dosage: UNK
     Route: 065
     Dates: start: 2019
  2. MILNANEURAX [Suspect]
     Active Substance: MILNACIPRAN HYDROCHLORIDE
     Indication: DEPRESSION
     Dosage: 2X50
     Route: 065
     Dates: start: 2016
  3. BUPROPION. [Suspect]
     Active Substance: BUPROPION
     Indication: DEPRESSION
     Dosage: UNK
     Route: 065
     Dates: start: 2016

REACTIONS (3)
  - Eye pain [Unknown]
  - Angle closure glaucoma [Unknown]
  - Headache [Unknown]

NARRATIVE: CASE EVENT DATE: 202012
